FAERS Safety Report 19469275 (Version 1)
Quarter: 2021Q2

REPORT INFORMATION
  Report Type: Spontaneous
  Country: US (occurrence: US)
  Receive Date: 20210629
  Receipt Date: 20210629
  Transmission Date: 20210717
  Serious: No
  Sender: FDA-Public Use
  Company Number: US-ORGANON-O2106USA002262

PATIENT
  Age: 33 Year
  Sex: Female
  Weight: 111.58 kg

DRUGS (2)
  1. NEXPLANON [Suspect]
     Active Substance: ETONOGESTREL
     Indication: CONTRACEPTION
     Dosage: 68 MILLIGRAM, ONCE; LEFT ARM
     Route: 059
     Dates: start: 20200929, end: 20210622
  2. NEXPLANON [Suspect]
     Active Substance: ETONOGESTREL
     Dosage: 1 DOSAGE FORM
     Route: 059
     Dates: end: 20200929

REACTIONS (3)
  - Mood swings [Recovering/Resolving]
  - Weight increased [Recovering/Resolving]
  - Device kink [Recovered/Resolved]

NARRATIVE: CASE EVENT DATE: 20210614
